FAERS Safety Report 6909064-4 (Version None)
Quarter: 2010Q3

REPORT INFORMATION
  Report Type: 
  Country: None (occurrence: None)
  Receive Date: 20100805
  Receipt Date: 20100729
  Transmission Date: 20110219
  Serious: Yes (Other)
  Sender: FDA-Public Use
  Company Number: JP-BRISTOL-MYERS SQUIBB COMPANY-15217409

PATIENT
  Age: 31 Year
  Sex: Female

DRUGS (3)
  1. MAXIPIME [Suspect]
     Route: 041
     Dates: start: 20100625, end: 20100701
  2. AMIKACIN [Concomitant]
  3. FIRSTCIN [Concomitant]

REACTIONS (1)
  - PNEUMONIA [None]
